FAERS Safety Report 13377247 (Version 1)
Quarter: 2017Q1

REPORT INFORMATION
  Report Type: Spontaneous
  Country: IT (occurrence: IT)
  Receive Date: 20170328
  Receipt Date: 20170328
  Transmission Date: 20170429
  Serious: Yes (Other)
  Sender: FDA-Public Use
  Company Number: IT-MYLANLABS-2017M1018502

PATIENT

DRUGS (2)
  1. LEVETIRACETAM MYLAN GENERICS 500MG COMPRESSE RIVESTITE CON FILM [Suspect]
     Active Substance: LEVETIRACETAM
     Indication: MENINGIOMA
     Dosage: 1000 MG, BID
     Route: 048
     Dates: start: 20170213
  2. BENTELAN [Concomitant]
     Active Substance: BETAMETHASONE SODIUM PHOSPHATE
     Indication: MENINGIOMA
     Dosage: 8 MG, UNK
     Route: 030

REACTIONS (3)
  - Off label use [Unknown]
  - Rash pustular [Recovering/Resolving]
  - Erythema [Recovering/Resolving]

NARRATIVE: CASE EVENT DATE: 20170220
